FAERS Safety Report 9957201 (Version 1)
Quarter: 2014Q1

REPORT INFORMATION
  Report Type: Report from Study
  Country: US (occurrence: US)
  Receive Date: 20140304
  Receipt Date: 20140304
  Transmission Date: 20141002
  Serious: No
  Sender: FDA-Public Use
  Company Number: US-ABBVIE-13P-163-1097766-00

PATIENT
  Age: 53 Year
  Sex: Female

DRUGS (6)
  1. HUMIRA [Suspect]
     Indication: PSORIASIS
     Dates: start: 20130522, end: 20130522
  2. HUMIRA [Suspect]
     Dosage: ATTEMPTED
     Dates: start: 20130529, end: 20130529
  3. HUMIRA [Suspect]
  4. LEXAPRO [Concomitant]
     Indication: DEPRESSION
     Dosage: DAILY
     Route: 048
  5. XANAX [Concomitant]
     Indication: ANXIETY
     Dosage: DAILY
     Route: 048
  6. CLOBETASOL [Concomitant]
     Indication: PSORIASIS
     Route: 061

REACTIONS (4)
  - Incorrect route of drug administration [Recovering/Resolving]
  - Device malfunction [Recovering/Resolving]
  - Incorrect dose administered [Recovering/Resolving]
  - Injection site haemorrhage [Recovering/Resolving]
